FAERS Safety Report 17287128 (Version 1)
Quarter: 2020Q1

REPORT INFORMATION
  Report Type: Spontaneous
  Country: US (occurrence: US)
  Receive Date: 20200120
  Receipt Date: 20200120
  Transmission Date: 20200409
  Serious: Yes (Life-Threatening, Other)
  Sender: FDA-Public Use
  Company Number: US-APOTEX-2020AP006278

PATIENT

DRUGS (1)
  1. TRAZODONE [Suspect]
     Active Substance: TRAZODONE HYDROCHLORIDE
     Indication: PRODUCT USED FOR UNKNOWN INDICATION
     Dosage: UNK
     Route: 065

REACTIONS (7)
  - Disturbance in attention [Unknown]
  - Epilepsy [Unknown]
  - Sensory overload [Unknown]
  - Partial seizures [Unknown]
  - Apparent life threatening event [Unknown]
  - Anxiety [Unknown]
  - Depression [Unknown]
